FAERS Safety Report 26130669 (Version 1)
Quarter: 2025Q4

REPORT INFORMATION
  Report Type: Spontaneous
  Country: US (occurrence: None)
  Receive Date: 20251206
  Receipt Date: 20251206
  Transmission Date: 20260117
  Serious: Yes (Hospitalization)
  Sender: FDA-CTU
  Company Number: None

PATIENT
  Age: 59 Year
  Sex: Female

DRUGS (1)
  1. PLEGRIDY [Suspect]
     Active Substance: PEGINTERFERON BETA-1A
     Indication: Multiple sclerosis
     Dosage: 125MCG EVERY 2 WEEKS SUBCUTANEOUS?
     Route: 058

REACTIONS (6)
  - Ear infection [None]
  - Fatigue [None]
  - Muscular weakness [None]
  - Pain in extremity [None]
  - Grip strength decreased [None]
  - Influenza like illness [None]
